FAERS Safety Report 15387006 (Version 1)
Quarter: 2018Q3

REPORT INFORMATION
  Report Type: Other
  Country: None (occurrence: NZ)
  Receive Date: 20180914
  Receipt Date: 20180914
  Transmission Date: 20181010
  Serious: Yes (Other)
  Sender: FDA-Public Use
  Company Number: NZ-LABORATOIRE HRA PHARMA-2054948

PATIENT
  Age: 4 Year
  Sex: Female

DRUGS (5)
  1. LYSODREN [Suspect]
     Active Substance: MITOTANE
     Indication: ADRENOCORTICAL CARCINOMA
     Route: 048
  2. ETOPOSIDE. [Concomitant]
     Active Substance: ETOPOSIDE
  3. CISPLATIN. [Concomitant]
     Active Substance: CISPLATIN
  4. DOXORUBICIN HYDROCHLORIDE. [Concomitant]
     Active Substance: DOXORUBICIN HYDROCHLORIDE
  5. HYDROCORTISONE. [Concomitant]
     Active Substance: HYDROCORTISONE

REACTIONS (7)
  - Pseudoprecocious puberty [None]
  - Hypothyroidism [None]
  - Precocious puberty [None]
  - Febrile neutropenia [None]
  - Epiphyses premature fusion [None]
  - Gastrointestinal disorder [None]
  - Adrenal insufficiency [None]
